FAERS Safety Report 13975921 (Version 1)
Quarter: 2017Q3

REPORT INFORMATION
  Report Type: Report from Study
  Country: US (occurrence: US)
  Receive Date: 20170914
  Receipt Date: 20170914
  Transmission Date: 20171128
  Serious: No
  Sender: FDA-Public Use
  Company Number: US-TARO-2016TAR01048

PATIENT
  Age: 74 Year
  Sex: Male
  Weight: 68.27 kg

DRUGS (5)
  1. GLIPIZIDE. [Concomitant]
     Active Substance: GLIPIZIDE
  2. GABAPENTIN. [Concomitant]
     Active Substance: GABAPENTIN
  3. CARVEDILOL. [Concomitant]
     Active Substance: CARVEDILOL
  4. CLOTRIMAZOLE TOPICAL SOLUTION USP 1% [Suspect]
     Active Substance: CLOTRIMAZOLE
     Indication: FUNGAL INFECTION
     Dosage: 1 GTT, ONCE
     Route: 061
     Dates: start: 20161216, end: 20161216
  5. VALSARTAN. [Concomitant]
     Active Substance: VALSARTAN

REACTIONS (1)
  - Burning sensation [Recovered/Resolved]

NARRATIVE: CASE EVENT DATE: 20161216
